FAERS Safety Report 23642139 (Version 1)
Quarter: 2024Q1

REPORT INFORMATION
  Report Type: Spontaneous
  Country: IT (occurrence: IT)
  Receive Date: 20240318
  Receipt Date: 20240318
  Transmission Date: 20240409
  Serious: Yes (Other)
  Sender: FDA-Public Use
  Company Number: IT-Zentiva-2024-ZT-004400

PATIENT
  Age: 51 Year
  Sex: Male

DRUGS (2)
  1. PRAMIPEXOLE [Suspect]
     Active Substance: PRAMIPEXOLE\PRAMIPEXOLE DIHYDROCHLORIDE
     Indication: Parkinson^s disease
     Dosage: 0.7 MILLIGRAM, ONCE A DAY
     Route: 065
  2. LEVODOPA [Suspect]
     Active Substance: LEVODOPA
     Indication: Parkinson^s disease
     Dosage: UNK
     Route: 065

REACTIONS (10)
  - Drug abuse [Not Recovered/Not Resolved]
  - Mood swings [Not Recovered/Not Resolved]
  - Dopamine dysregulation syndrome [Not Recovered/Not Resolved]
  - Hypomania [Not Recovered/Not Resolved]
  - Condition aggravated [Not Recovered/Not Resolved]
  - Dyskinesia [Not Recovered/Not Resolved]
  - On and off phenomenon [Unknown]
  - Anxiety [Unknown]
  - Depressive symptom [Unknown]
  - Intentional product use issue [Not Recovered/Not Resolved]
